FAERS Safety Report 13846805 (Version 1)
Quarter: 2017Q3

REPORT INFORMATION
  Report Type: Spontaneous
  Country: US (occurrence: US)
  Receive Date: 20170808
  Receipt Date: 20170808
  Transmission Date: 20171127
  Serious: No
  Sender: FDA-Public Use
  Company Number: US-SA-2017SA101665

PATIENT
  Age: 21 Year
  Sex: Male

DRUGS (1)
  1. XYZAL ALLERGY 24HR [Suspect]
     Active Substance: LEVOCETIRIZINE DIHYDROCHLORIDE
     Dosage: START DATE WAS 4-5 DAYS AGO
     Route: 065

REACTIONS (3)
  - Pollakiuria [Unknown]
  - Agitation [Unknown]
  - Dysuria [Unknown]
